FAERS Safety Report 6083574-7 (Version None)
Quarter: 2009Q1

REPORT INFORMATION
  Report Type: 
  Country: None (occurrence: None)
  Receive Date: 20090219
  Receipt Date: 20090210
  Transmission Date: 20090719
  Serious: Yes (Hospitalization)
  Sender: FDA-Public Use
  Company Number: PHHY2009FR05218

PATIENT
  Age: 73 Year
  Sex: Female

DRUGS (1)
  1. LEPONEX [Suspect]
     Dosage: 25 MG/DAY
     Dates: start: 20081201, end: 20090115

REACTIONS (10)
  - ABASIA [None]
  - CONFUSIONAL STATE [None]
  - HYPOPHAGIA [None]
  - HYPOTHERMIA [None]
  - LACTIC ACIDOSIS [None]
  - LUNG DISORDER [None]
  - OEDEMA [None]
  - OVERDOSE [None]
  - RENAL FAILURE [None]
  - SOMNOLENCE [None]
